FAERS Safety Report 5221802-8 (Version None)
Quarter: 2007Q1

REPORT INFORMATION
  Report Type: 
  Country: None (occurrence: None)
  Receive Date: 20070129
  Receipt Date: 20070118
  Transmission Date: 20070707
  Serious: Yes (Death, Hospitalization, Other)
  Sender: FDA-Public Use
  Company Number: GB-JNJFOC-20061103747

PATIENT
  Sex: Male
  Weight: 66 kg

DRUGS (10)
  1. REMICADE [Suspect]
     Indication: RHEUMATOID ARTHRITIS
     Route: 042
  2. PREDNISOLONE [Concomitant]
     Route: 065
  3. FOLIC ACID [Concomitant]
     Route: 065
  4. HYDROXYZINE [Concomitant]
     Route: 065
  5. LANSOPRAZOLE [Concomitant]
     Route: 065
  6. MTX [Concomitant]
     Route: 065
  7. PARACETAMOL [Concomitant]
     Route: 065
  8. PENICILLIN [Concomitant]
     Route: 065
  9. RESIDRONATE [Concomitant]
     Route: 065
  10. SULFASALAZINE [Concomitant]
     Route: 065

REACTIONS (2)
  - SEPSIS [None]
  - URINARY TRACT INFECTION [None]
